FAERS Safety Report 18168156 (Version 6)
Quarter: 2020Q4

REPORT INFORMATION
  Report Type: Report from Study
  Country: US (occurrence: US)
  Receive Date: 20200819
  Receipt Date: 20201208
  Transmission Date: 20210113
  Serious: Yes (Other)
  Sender: FDA-Public Use
  Company Number: US-BRISTOL-MYERS SQUIBB COMPANY-BMS-2020-065961

PATIENT
  Age: 71 Year
  Sex: Male

DRUGS (8)
  1. SKENAN [Concomitant]
     Active Substance: MORPHINE SULFATE
     Indication: NECK PAIN
     Dosage: 30 MILLIGRAM, BID
     Route: 048
     Dates: start: 201906, end: 20200723
  2. MACROGOL [Concomitant]
     Active Substance: POLYETHYLENE GLYCOLS
     Indication: PRODUCT USED FOR UNKNOWN INDICATION
     Dosage: 1 DOSAGE FORM = 1 SACHET AS NEEDED
     Route: 048
     Dates: start: 201906
  3. ACTISKENAN [Concomitant]
     Active Substance: MORPHINE SULFATE
     Dosage: 5 MILLIGRAM AS NEEDED
     Route: 048
     Dates: start: 20200723
  4. NIVOLUMAB [Suspect]
     Active Substance: NIVOLUMAB
     Indication: MALIGNANT MELANOMA
     Dosage: 240 MILLIGRAM
     Route: 042
     Dates: start: 20200709, end: 20200813
  5. COVERAM [Concomitant]
     Active Substance: AMLODIPINE\PERINDOPRIL
     Indication: HYPERTENSION
     Dosage: 1 TAB, QD
     Route: 048
     Dates: start: 201907
  6. SKENAN [Concomitant]
     Active Substance: MORPHINE SULFATE
     Dosage: 20 MILLIGRAM, BID
     Route: 048
     Dates: start: 20200723
  7. ACTISKENAN [Concomitant]
     Active Substance: MORPHINE SULFATE
     Indication: NECK PAIN
     Dosage: 10 MILLIGRAM AS NEEDED
     Route: 048
     Dates: start: 201906, end: 20200723
  8. PREGABALIN. [Concomitant]
     Active Substance: PREGABALIN
     Indication: NECK PAIN
     Dosage: 150 MILLIGRAM, BID
     Route: 048
     Dates: start: 20200519

REACTIONS (1)
  - Ataxia [Recovered/Resolved with Sequelae]

NARRATIVE: CASE EVENT DATE: 20200709
